FAERS Safety Report 7355731-0 (Version None)
Quarter: 2011Q1

REPORT INFORMATION
  Report Type: 
  Country: None (occurrence: None)
  Receive Date: 20110316
  Receipt Date: 20110304
  Transmission Date: 20110831
  Serious: Yes (Other)
  Sender: FDA-Public Use
  Company Number: JP-JNJFOC-20110303136

PATIENT
  Sex: Female
  Weight: 55 kg

DRUGS (20)
  1. MUCOSTA [Concomitant]
     Route: 048
  2. DECADRON [Concomitant]
     Indication: PROPHYLAXIS
     Route: 042
  3. DOXORUBICIN HCL [Suspect]
     Indication: UTERINE CANCER
     Route: 042
  4. GASTER [Concomitant]
     Route: 042
  5. TIENAM [Concomitant]
     Route: 042
  6. PREDONINE [Concomitant]
     Indication: PROPHYLAXIS
     Route: 048
  7. GLYCYRRHIZIC ACID/GLYCINE/CYSTEINE [Concomitant]
     Route: 042
  8. METHYCOBAL [Concomitant]
     Route: 048
  9. MAGMITT [Concomitant]
     Route: 048
  10. PANSPORIN [Concomitant]
     Route: 042
  11. DOXORUBICIN HCL [Suspect]
     Route: 042
  12. NAIXAN [Concomitant]
     Route: 048
  13. BIOFERMIN [Concomitant]
     Route: 048
  14. PYDOXAL [Concomitant]
     Indication: PROPHYLAXIS
     Route: 048
  15. LASIX [Concomitant]
     Route: 048
  16. FLURBIPROFEN [Concomitant]
     Route: 042
  17. FERROUS CITRATE [Concomitant]
     Route: 048
  18. PREDONINE [Concomitant]
     Route: 048
  19. NEU-UP [Concomitant]
     Route: 042
  20. FIRSTCIN [Concomitant]
     Route: 042

REACTIONS (2)
  - BONE MARROW FAILURE [None]
  - HEPATIC FUNCTION ABNORMAL [None]
